FAERS Safety Report 16669087 (Version 1)
Quarter: 2019Q3

REPORT INFORMATION
  Report Type: Spontaneous
  Country: BR (occurrence: BR)
  Receive Date: 20190805
  Receipt Date: 20190805
  Transmission Date: 20191004
  Serious: Yes (Other)
  Sender: FDA-Public Use
  Company Number: BR-009507513-1907BRA016167

PATIENT
  Sex: Female
  Weight: 75 kg

DRUGS (2)
  1. JANUMET [Suspect]
     Active Substance: METFORMIN HYDROCHLORIDE\SITAGLIPTIN PHOSPHATE
     Indication: DIABETES MELLITUS
     Dosage: 2 TABLET PER DAY
     Route: 048
     Dates: start: 2014
  2. CITONEURIN (CYANOCOBALAMIN (+) PYRIDOXINE HYDROCHLORIDE (+) THIAMINE H [Concomitant]

REACTIONS (6)
  - Hepatectomy [Unknown]
  - Cholecystectomy [Unknown]
  - Hepatic cirrhosis [Unknown]
  - Regurgitation [Unknown]
  - Anxiety [Unknown]
  - Nausea [Unknown]

NARRATIVE: CASE EVENT DATE: 2019
